FAERS Safety Report 21564595 (Version 1)
Quarter: 2022Q4

REPORT INFORMATION
  Report Type: Report from Study
  Country: US (occurrence: US)
  Receive Date: 20221108
  Receipt Date: 20221108
  Transmission Date: 20230113
  Serious: No
  Sender: FDA-Public Use
  Company Number: US-ABBVIE-4151714

PATIENT
  Sex: Female

DRUGS (11)
  1. HUMIRA [Suspect]
     Active Substance: ADALIMUMAB
     Indication: Psoriatic arthropathy
     Route: 058
  2. ELMISARTAN TAB 80MG [Concomitant]
     Indication: Product used for unknown indication
  3. METFORMIN HC TB2 750MG [Concomitant]
     Indication: Product used for unknown indication
  4. OMEPRAZOLE CPD 40MG [Concomitant]
     Indication: Product used for unknown indication
  5. DESVENLAFAXI TB2 100MG [Concomitant]
     Indication: Product used for unknown indication
  6. ZOLPIDEM TAR TBC 12.5MG [Concomitant]
     Indication: Product used for unknown indication
  7. ROSUVASTATIN [Concomitant]
     Active Substance: ROSUVASTATIN
     Indication: Product used for unknown indication
  8. CARVEDILOL TAB 25MG [Concomitant]
     Indication: Product used for unknown indication
  9. HYDROCHLOROT CAP 12.5MG [Concomitant]
     Indication: Product used for unknown indication
  10. MYRBETRIQ TB2 50MG [Concomitant]
     Indication: Product used for unknown indication
  11. AMLODIPINE B TAB 10MG [Concomitant]
     Indication: Product used for unknown indication

REACTIONS (2)
  - Alopecia [Not Recovered/Not Resolved]
  - Psoriasis [Not Recovered/Not Resolved]
